FAERS Safety Report 23182379 (Version 2)
Quarter: 2023Q4

REPORT INFORMATION
  Report Type: Report from Study
  Country: RU (occurrence: RU)
  Receive Date: 20231114
  Receipt Date: 20231120
  Transmission Date: 20240110
  Serious: Yes (Life-Threatening)
  Sender: FDA-Public Use
  Company Number: RU-PFIZER INC-202101345807

PATIENT
  Age: 50 Year
  Sex: Female
  Weight: 61 kg

DRUGS (11)
  1. PALBOCICLIB [Suspect]
     Active Substance: PALBOCICLIB
     Indication: Breast cancer metastatic
     Dosage: 125 MG,1 IN 1 D
     Route: 048
     Dates: start: 20210618
  2. PALBOCICLIB [Suspect]
     Active Substance: PALBOCICLIB
     Dosage: 125 MG,1 IN 1 D
     Route: 048
  3. PALBOCICLIB [Suspect]
     Active Substance: PALBOCICLIB
     Dosage: 75 MG
     Route: 048
  4. FULVESTRANT [Suspect]
     Active Substance: FULVESTRANT
     Indication: Breast cancer metastatic
     Dosage: 500 MG,1 IN 4 WK
     Route: 030
     Dates: start: 20210618
  5. FULVESTRANT [Suspect]
     Active Substance: FULVESTRANT
     Dosage: 500 MG,1 IN 4 WK
     Route: 030
  6. INVESTIGATIONAL PRODUCT [Suspect]
     Active Substance: INVESTIGATIONAL PRODUCT
     Indication: Breast cancer metastatic
     Dosage: UNK, 1X/DAY(ONCE EVERY DAY)
     Route: 048
     Dates: start: 20210618
  7. INVESTIGATIONAL PRODUCT [Suspect]
     Active Substance: INVESTIGATIONAL PRODUCT
     Dosage: UNK, 1X/DAY(ONCE EVERY DAY)
     Route: 048
  8. GOSERELIN [Concomitant]
     Active Substance: GOSERELIN
     Dosage: 3.6 MG,1 IN 1 M
     Route: 058
     Dates: start: 20210618
  9. SORBIFER DURULES [ASCORBIC ACID;FERROUS SULFATE] [Concomitant]
     Indication: Anaemia
     Dosage: 1 CAPSULE (320 MG, 2 IN 1 D)
     Route: 048
     Dates: start: 20220427
  10. IBUPROFEN [Concomitant]
     Active Substance: IBUPROFEN
     Indication: Pain
     Dosage: 200 MG, 1 IN 1 AS REQUIRED
     Route: 048
     Dates: start: 20220526, end: 20220526
  11. ELTROMBOPAG OLAMINE [Concomitant]
     Active Substance: ELTROMBOPAG OLAMINE
     Dosage: 25 MG, DAILY (EVERY DAY)
     Route: 048
     Dates: start: 20220507

REACTIONS (1)
  - Thrombocytopenia [Recovered/Resolved]

NARRATIVE: CASE EVENT DATE: 20210813
